FAERS Safety Report 4814934-7 (Version None)
Quarter: 2005Q4

REPORT INFORMATION
  Report Type: 
  Country: None (occurrence: None)
  Receive Date: 20051026
  Receipt Date: 20051013
  Transmission Date: 20060501
  Serious: Yes (Other)
  Sender: FDA-Public Use
  Company Number: 2005143258

PATIENT
  Age: 19 Year
  Sex: Female
  Weight: 66.8 kg

DRUGS (2)
  1. DEPO-PROVERA [Suspect]
     Indication: CONTRACEPTION
     Dosage: 150 MG (150 MG, EVERY 12 WEEKS, FIRST INJECTION), INTRAMUSCULAR
     Route: 030
     Dates: start: 20030219, end: 20030219
  2. DEPO-PROVERA [Suspect]
     Indication: CONTRACEPTION
     Dosage: 150 MG (150 MG, EVERY 12 WEEKS, FIRST INJECTION), INTRAMUSCULAR
     Route: 030
     Dates: start: 20050401, end: 20050401

REACTIONS (3)
  - ABORTION SPONTANEOUS [None]
  - DRUG EXPOSURE DURING PREGNANCY [None]
  - PREGNANCY WITH INJECTABLE CONTRACEPTIVE [None]
